FAERS Safety Report 20899066 (Version 1)
Quarter: 2022Q2

REPORT INFORMATION
  Report Type: Report from Study
  Country: HU (occurrence: HU)
  Receive Date: 20220601
  Receipt Date: 20220601
  Transmission Date: 20220721
  Serious: Yes (Other)
  Sender: FDA-Public Use
  Company Number: HU-ABBVIE-22K-076-4417073-00

PATIENT
  Sex: Female

DRUGS (7)
  1. SKYRIZI [Suspect]
     Active Substance: RISANKIZUMAB-RZAA
     Indication: Psoriasis
     Dosage: 150 MG PER MONTH
     Route: 058
     Dates: start: 20191028, end: 20191124
  2. SKYRIZI [Suspect]
     Active Substance: RISANKIZUMAB-RZAA
     Dosage: 150 MG PER 3 MONTH
     Route: 058
     Dates: start: 20191125
  3. MINIPRESS [Concomitant]
     Active Substance: PRAZOSIN HYDROCHLORIDE
     Indication: Hypertension
     Dosage: 4 MG DAILY
     Route: 048
     Dates: start: 2009
  4. ASPIRIN [Concomitant]
     Active Substance: ASPIRIN
     Indication: Chronic gastritis
     Dosage: 100 MG DAILY
     Route: 048
     Dates: start: 2014
  5. FAMOTIDINE [Concomitant]
     Active Substance: FAMOTIDINE
     Indication: Chronic gastritis
     Dosage: 40 MG DAILY
     Route: 048
     Dates: start: 2014
  6. RILMENIDINE [Concomitant]
     Active Substance: RILMENIDINE
     Indication: Hypertension
     Dosage: 1.00 MG DAILY
     Route: 048
     Dates: start: 2015
  7. INSULIN HUMAN [Concomitant]
     Active Substance: INSULIN HUMAN
     Indication: Diabetes mellitus
     Dosage: 24 IU DAILY
     Route: 058
     Dates: start: 2009

REACTIONS (1)
  - Breast cancer [Recovering/Resolving]

NARRATIVE: CASE EVENT DATE: 20220303
